FAERS Safety Report 4599798-1 (Version None)
Quarter: 2005Q1

REPORT INFORMATION
  Report Type: 
  Country: None (occurrence: None)
  Receive Date: 20050304
  Receipt Date: 20050304
  Transmission Date: 20050727
  Serious: Yes (Life-Threatening, Hospitalization, Other)
  Sender: FDA-Public Use
  Company Number: None

PATIENT
  Age: 38 Year
  Sex: Female
  Weight: 72.5755 kg

DRUGS (1)
  1. MISOPROSTOL [Suspect]
     Indication: LABOUR INDUCTION
     Dosage: 50 + 50 MC

REACTIONS (4)
  - HAEMORRHAGE [None]
  - HYSTERECTOMY [None]
  - LOSS OF CONSCIOUSNESS [None]
  - OOPHORECTOMY [None]
